FAERS Safety Report 16383227 (Version 1)
Quarter: 2019Q2

REPORT INFORMATION
  Report Type: Spontaneous
  Country: US (occurrence: US)
  Receive Date: 20190516
  Receipt Date: 20190516
  Transmission Date: 20190711
  Serious: Yes (Hospitalization)
  Sender: FDA-Public Use
  Company Number: None

PATIENT
  Age: 80 Year
  Sex: Male
  Weight: 90.45 kg

DRUGS (6)
  1. ATORVASTATIN [Concomitant]
     Active Substance: ATORVASTATIN
     Dates: start: 20180810
  2. TAMSULOSIN [Concomitant]
     Active Substance: TAMSULOSIN
     Dates: start: 20110802
  3. DULOXETINE. [Suspect]
     Active Substance: DULOXETINE
     Indication: DRUG THERAPY
     Route: 048
     Dates: start: 20190117, end: 20190516
  4. LOSARTAN. [Concomitant]
     Active Substance: LOSARTAN
     Dates: start: 20130426
  5. LEVOTHYROXINE. [Concomitant]
     Active Substance: LEVOTHYROXINE
     Dates: start: 20180208
  6. MONTELUKAST [Concomitant]
     Active Substance: MONTELUKAST SODIUM
     Dates: start: 20141028

REACTIONS (1)
  - Pancreatitis acute [None]

NARRATIVE: CASE EVENT DATE: 20190428
